FAERS Safety Report 17240774 (Version 4)
Quarter: 2025Q3

REPORT INFORMATION
  Report Type: Spontaneous
  Country: EU (occurrence: EU)
  Receive Date: 20200107
  Receipt Date: 20250705
  Transmission Date: 20251021
  Serious: Yes (Other)
  Sender: AUROBINDO
  Company Number: EU-KRKA-FR2019K21516LIT

PATIENT
  Age: 64 Year

DRUGS (5)
  1. ATAZANAVIR [Interacting]
     Active Substance: ATAZANAVIR
     Indication: HIV infection
     Route: 065
  2. BUDESONIDE [Interacting]
     Active Substance: BUDESONIDE
     Indication: Asthma
     Route: 055
  3. RITONAVIR [Interacting]
     Active Substance: RITONAVIR
     Indication: HIV infection
     Route: 065
  4. EMTRICITABINE\TENOFOVIR DISOPROXIL [Interacting]
     Active Substance: EMTRICITABINE\TENOFOVIR DISOPROXIL
     Indication: HIV infection
     Route: 065
  5. BUDESONIDE\FORMOTEROL [Interacting]
     Active Substance: BUDESONIDE\FORMOTEROL
     Indication: Asthma
     Route: 065

REACTIONS (2)
  - Cushing^s syndrome [Unknown]
  - Drug interaction [Unknown]
